FAERS Safety Report 4509508-1 (Version None)
Quarter: 2004Q4

REPORT INFORMATION
  Report Type: 
  Country: None (occurrence: None)
  Receive Date: 20041119
  Receipt Date: 20041112
  Transmission Date: 20050328
  Serious: Yes (Other)
  Sender: FDA-Public Use
  Company Number: US-JNJFOC-20041103290

PATIENT
  Sex: Female

DRUGS (1)
  1. MOTRIN IB [Suspect]

REACTIONS (1)
  - CEREBRAL HAEMORRHAGE [None]
